FAERS Safety Report 15424745 (Version 1)
Quarter: 2018Q3

REPORT INFORMATION
  Report Type: Spontaneous
  Country: DE (occurrence: DE)
  Receive Date: 20180925
  Receipt Date: 20180925
  Transmission Date: 20181010
  Serious: Yes (Hospitalization)
  Sender: FDA-Public Use
  Company Number: DE-MYLANLABS-2018M1069482

PATIENT
  Age: 80 Year
  Sex: Female
  Weight: 64 kg

DRUGS (5)
  1. EISEN(II)?GLYCIN?SULFAT?KOMPLEX [Concomitant]
     Active Substance: FERROUS GLYCINE SULFATE
     Indication: PRODUCT USED FOR UNKNOWN INDICATION
     Dosage: 100 MG, QD  1?0?0
     Route: 048
  2. XARELTO [Concomitant]
     Active Substance: RIVAROXABAN
     Indication: PRODUCT USED FOR UNKNOWN INDICATION
     Dosage: 20 MG, QD 1?0?0, TABLETTEN
     Route: 048
  3. METOPROLOL. [Suspect]
     Active Substance: METOPROLOL
     Indication: PRODUCT USED FOR UNKNOWN INDICATION
     Dosage: 47 MG, QD  1?0?0, TABLETTEN
     Route: 048
  4. PANTOPRAZOLE [Concomitant]
     Active Substance: PANTOPRAZOLE
     Indication: PRODUCT USED FOR UNKNOWN INDICATION
     Dosage: 40 MG, QD  1?0?0, TABLETTEN
     Route: 048
  5. DICLO                              /00372301/ [Concomitant]
     Active Substance: DICLOFENAC
     Indication: PRODUCT USED FOR UNKNOWN INDICATION
     Dosage: TABLETTEN
     Route: 048

REACTIONS (3)
  - Visual impairment [Unknown]
  - Syncope [Unknown]
  - Hypotension [Unknown]
